FAERS Safety Report 16458379 (Version 1)
Quarter: 2019Q2

REPORT INFORMATION
  Report Type: Spontaneous
  Country: IT (occurrence: IT)
  Receive Date: 20190620
  Receipt Date: 20190620
  Transmission Date: 20190711
  Serious: Yes (Other)
  Sender: FDA-Public Use
  Company Number: IND-IT-009507513-1905ITA009799

PATIENT
  Age: 48 Year
  Sex: Female

DRUGS (4)
  1. FLUOXETINE [Concomitant]
     Active Substance: FLUOXETINE HYDROCHLORIDE
  2. TAVOR (FLUCONAZOLE) [Concomitant]
     Active Substance: FLUCONAZOLE
  3. ALGIX 120MG COMPRESSE RIVESTITE CON FILM [Suspect]
     Active Substance: ETORICOXIB
     Indication: NECK PAIN
     Dosage: 120 MILLIGRAM
     Route: 048
     Dates: start: 20190405, end: 20190405
  4. LITHIUM. [Concomitant]
     Active Substance: LITHIUM

REACTIONS (2)
  - Abdominal pain [Recovered/Resolved]
  - Cold sweat [Recovered/Resolved]

NARRATIVE: CASE EVENT DATE: 20190405
